FAERS Safety Report 11916248 (Version 2)
Quarter: 2016Q2

REPORT INFORMATION
  Report Type: Spontaneous
  Country: US (occurrence: US)
  Receive Date: 20160114
  Receipt Date: 20160505
  Transmission Date: 20160815
  Serious: No
  Sender: FDA-Public Use
  Company Number: US-ASTRAZENECA-2016SE02272

PATIENT
  Sex: Male
  Weight: 106.6 kg

DRUGS (8)
  1. RHINOCORT AQUA [Suspect]
     Active Substance: BUDESONIDE
     Indication: HYPERSENSITIVITY
     Dosage: 32 MCG ONCE A DAY 2 SPRAYS EACH NOSTRIL
     Route: 045
     Dates: start: 20151218, end: 20160121
  2. GLIMEPIRIDE. [Concomitant]
     Active Substance: GLIMEPIRIDE
     Indication: DIABETES MELLITUS
  3. CARVEDILOL. [Concomitant]
     Active Substance: CARVEDILOL
     Indication: CARDIAC DISORDER
     Dosage: 6.25 MG FOR 2 OR 3 WEEKS TWICE DAILY
  4. LORAZEPAM. [Concomitant]
     Active Substance: LORAZEPAM
  5. RHINOCORT AQUA [Suspect]
     Active Substance: BUDESONIDE
     Indication: RHINITIS
     Dosage: 32 MCG ONCE A DAY 2 SPRAYS EACH NOSTRIL
     Route: 045
     Dates: start: 20151218, end: 20160121
  6. SOMA [Concomitant]
     Active Substance: CARISOPRODOL
     Indication: MUSCLE RELAXANT THERAPY
  7. HYDROMORPHONE [Concomitant]
     Active Substance: HYDROMORPHONE
  8. METFORMIN [Concomitant]
     Active Substance: METFORMIN HYDROCHLORIDE
     Indication: DIABETES MELLITUS

REACTIONS (3)
  - Drug ineffective [Unknown]
  - Dyspnoea [Unknown]
  - Nasal congestion [Unknown]
